FAERS Safety Report 5822972-0 (Version None)
Quarter: 2008Q3

REPORT INFORMATION
  Report Type: 
  Country: None (occurrence: None)
  Receive Date: 20080725
  Receipt Date: 20080721
  Transmission Date: 20090109
  Serious: Yes (Death)
  Sender: FDA-Public Use
  Company Number: A0739603A

PATIENT
  Age: 66 Year
  Sex: Male
  Weight: 54 kg

DRUGS (3)
  1. SERETIDE [Suspect]
     Indication: BRONCHITIS
     Route: 055
     Dates: start: 20080501, end: 20080617
  2. FLUIR [Concomitant]
     Dates: start: 20020101, end: 20080617
  3. BEROTEC [Concomitant]
     Dates: start: 20020101, end: 20080617

REACTIONS (1)
  - BRONCHITIS [None]
